FAERS Safety Report 6982637-9 (Version None)
Quarter: 2010Q3

REPORT INFORMATION
  Report Type: 
  Country: None (occurrence: None)
  Receive Date: 20100914
  Receipt Date: 20100219
  Transmission Date: 20110219
  Serious: No
  Sender: FDA-Public Use
  Company Number: US-PFIZER INC-2010002569

PATIENT
  Age: 37 Year
  Sex: Female

DRUGS (4)
  1. LYRICA [Suspect]
     Dosage: 300 MG, 2X/DAY
  2. METFORMIN HCL [Suspect]
  3. CYMBALTA [Suspect]
     Dosage: 60 MG/DAY
  4. NOVOLOG [Suspect]

REACTIONS (1)
  - WEIGHT INCREASED [None]
